FAERS Safety Report 6726232-5 (Version None)
Quarter: 2010Q2

REPORT INFORMATION
  Report Type: 
  Country: None (occurrence: None)
  Receive Date: 20100514
  Receipt Date: 20100503
  Transmission Date: 20101027
  Serious: Yes (Death, Hospitalization, Other)
  Sender: FDA-Public Use
  Company Number: US-PFIZER INC-2010056270

PATIENT
  Sex: Male
  Weight: 74.83 kg

DRUGS (10)
  1. DILANTIN [Suspect]
     Indication: CONVULSION
     Dosage: UNK
  2. ACETAMINOPHEN [Suspect]
  3. CARBIDOPA [Concomitant]
  4. LEVODOPA [Concomitant]
  5. KLONOPIN [Concomitant]
  6. TRAZODONE [Concomitant]
  7. LORAZEPAM [Concomitant]
  8. CYMBALTA [Concomitant]
  9. LORATADINE [Concomitant]
  10. ALBUTEROL [Concomitant]

REACTIONS (14)
  - ABDOMINAL PAIN [None]
  - AMNESIA [None]
  - ANXIETY [None]
  - DIZZINESS [None]
  - DYSPNOEA [None]
  - FATIGUE [None]
  - FEAR [None]
  - LIVER INJURY [None]
  - LOSS OF CONSCIOUSNESS [None]
  - NAUSEA [None]
  - OVERDOSE [None]
  - SYNCOPE [None]
  - URINARY RETENTION [None]
  - VOMITING [None]
